FAERS Safety Report 10433807 (Version 2)
Quarter: 2014Q3

REPORT INFORMATION
  Report Type: Report from Study
  Country: ZA (occurrence: ZA)
  Receive Date: 20140905
  Receipt Date: 20140905
  Transmission Date: 20150326
  Serious: Yes (Death, Hospitalization)
  Sender: FDA-Public Use
  Company Number: ZA-BRISTOL-MYERS SQUIBB COMPANY-21273974

PATIENT
  Age: 78 Year
  Sex: Male

DRUGS (4)
  1. APIXABAN [Suspect]
     Active Substance: APIXABAN
     Indication: CEREBROVASCULAR ACCIDENT PROPHYLAXIS
     Dosage: 24JAN11-04JUL14?11JUL14- ONGOING
     Route: 048
     Dates: start: 20110124
  2. DIGITALIS [Concomitant]
     Active Substance: DIGITALIS
     Dates: start: 1993
  3. SPIRACTIN [Concomitant]
     Active Substance: SPIRONOLACTONE
     Dates: start: 20140131
  4. DILATREND [Concomitant]
     Active Substance: CARVEDILOL
     Dates: start: 20100415

REACTIONS (3)
  - Pneumonia [Fatal]
  - Plastic surgery [Recovered/Resolved]
  - Cardiac failure [Fatal]

NARRATIVE: CASE EVENT DATE: 20140707
